FAERS Safety Report 23093537 (Version 1)
Quarter: 2023Q4

REPORT INFORMATION
  Report Type: Spontaneous
  Country: US (occurrence: US)
  Receive Date: 20231023
  Receipt Date: 20231023
  Transmission Date: 20240110
  Serious: No
  Sender: FDA-Public Use
  Company Number: US-Teikoku Pharma USA-TPU2023-00533

PATIENT
  Sex: Female

DRUGS (3)
  1. LIDODERM [Suspect]
     Active Substance: LIDOCAINE
     Indication: Scoliosis
  2. LIDODERM [Suspect]
     Active Substance: LIDOCAINE
     Indication: Intervertebral disc degeneration
  3. LIDOCAINE [Concomitant]
     Active Substance: LIDOCAINE

REACTIONS (1)
  - Disease progression [Unknown]
